FAERS Safety Report 22388098 (Version 1)
Quarter: 2023Q2

REPORT INFORMATION
  Report Type: Spontaneous
  Country: US (occurrence: US)
  Receive Date: 20230531
  Receipt Date: 20230531
  Transmission Date: 20230721
  Serious: No
  Sender: FDA-Public Use
  Company Number: US-MIRUM PHARMACEUTICALS, INC.-US-MIR-23-00140

PATIENT

DRUGS (1)
  1. LIVMARLI [Suspect]
     Active Substance: MARALIXIBAT CHLORIDE
     Indication: Alagille syndrome
     Dosage: UNK
     Route: 048
     Dates: start: 20230211

REACTIONS (5)
  - Roseola [Unknown]
  - Jaundice [Unknown]
  - Pruritus [Unknown]
  - Vomiting [Unknown]
  - Incorrect dose administered [Unknown]
